FAERS Safety Report 4472978-1 (Version None)
Quarter: 2004Q4

REPORT INFORMATION
  Report Type: 
  Country: None (occurrence: None)
  Receive Date: 20041013
  Receipt Date: 20040823
  Transmission Date: 20050328
  Serious: Yes (Other)
  Sender: FDA-Public Use
  Company Number: GB-ROCHE-378698

PATIENT
  Age: 65 Year
  Sex: Female
  Weight: 101.6 kg

DRUGS (3)
  1. XENICAL [Suspect]
     Indication: DRUG USE FOR UNKNOWN INDICATION
     Route: 048
     Dates: start: 20040817, end: 20040824
  2. ATENOLOL [Concomitant]
     Dosage: GIVEN EVERY MORNING
     Route: 048
     Dates: start: 20040121
  3. THYROXINE [Concomitant]
     Dosage: GIVEN EVERY MORNING.
     Route: 048
     Dates: start: 20020118

REACTIONS (3)
  - BURNING SENSATION [None]
  - DYSURIA [None]
  - ORAL PAIN [None]
